FAERS Safety Report 6714467-7 (Version None)
Quarter: 2010Q2

REPORT INFORMATION
  Report Type: 
  Country: None (occurrence: None)
  Receive Date: 20100506
  Receipt Date: 20100429
  Transmission Date: 20101027
  Serious: Yes (Other)
  Sender: FDA-Public Use
  Company Number: GB-WATSON-2010-05978

PATIENT

DRUGS (1)
  1. QUININE SULFATE (WATSON LABORATORIES) [Suspect]
     Indication: DRUG USE FOR UNKNOWN INDICATION
     Dosage: UNK MG, QHS
     Route: 048

REACTIONS (3)
  - BLOOD INSULIN INCREASED [None]
  - C-REACTIVE PROTEIN INCREASED [None]
  - HYPOGLYCAEMIA [None]
